FAERS Safety Report 9495085 (Version 1)
Quarter: 2013Q3

REPORT INFORMATION
  Report Type: Spontaneous
  Country: CN (occurrence: CN)
  Receive Date: 20130903
  Receipt Date: 20130903
  Transmission Date: 20140515
  Serious: Yes (Death, Other)
  Sender: FDA-Public Use
  Company Number: CN-ROCHE-1269286

PATIENT
  Sex: Male
  Weight: 72 kg

DRUGS (1)
  1. CEFTRIAXONE SODIUM [Suspect]
     Indication: INFECTION
     Route: 041
     Dates: start: 20120228, end: 20120311

REACTIONS (2)
  - Rash [Not Recovered/Not Resolved]
  - Death [Fatal]
